FAERS Safety Report 7977472-9 (Version None)
Quarter: 2011Q4

REPORT INFORMATION
  Report Type: 
  Country: None (occurrence: None)
  Receive Date: 20111214
  Receipt Date: 20111117
  Transmission Date: 20120403
  Serious: No
  Sender: FDA-Public Use
  Company Number: US-AMGEN-USASP2011060663

PATIENT
  Age: 39 Year
  Sex: Male

DRUGS (2)
  1. ENBREL [Suspect]
     Indication: RHEUMATOID ARTHRITIS
     Dosage: 50 MG, QWK
     Dates: start: 19991001
  2. ENBREL [Suspect]
     Indication: PSORIATIC ARTHROPATHY

REACTIONS (4)
  - RESPIRATORY TRACT CONGESTION [None]
  - UPPER RESPIRATORY TRACT CONGESTION [None]
  - ARTHRALGIA [None]
  - COUGH [None]
